FAERS Safety Report 4406250-2 (Version None)
Quarter: 2004Q3

REPORT INFORMATION
  Report Type: 
  Country: None (occurrence: None)
  Receive Date: 20040723
  Receipt Date: 20030320
  Transmission Date: 20050211
  Serious: No
  Sender: FDA-Public Use
  Company Number: US-GLAXOSMITHKLINE-A0401305A

PATIENT
  Age: 55 Year
  Sex: Male

DRUGS (6)
  1. AVANDIA [Suspect]
     Route: 048
     Dates: start: 20020901
  2. GLYBURIDE [Concomitant]
     Route: 048
  3. GLUCOPHAGE XR [Concomitant]
  4. AVAPRO [Concomitant]
  5. LIPITOR [Concomitant]
     Route: 048
  6. ALLOPURINOL [Concomitant]
     Route: 048

REACTIONS (2)
  - FATIGUE [None]
  - WEIGHT INCREASED [None]
